FAERS Safety Report 19159993 (Version 1)
Quarter: 2021Q2

REPORT INFORMATION
  Report Type: Report from Study
  Country: None (occurrence: US)
  Receive Date: 20210421
  Receipt Date: 20210421
  Transmission Date: 20210717
  Serious: Yes (Other)
  Sender: FDA-Public Use
  Company Number: US-ABBVIE-21K-163-3862626-00

PATIENT
  Sex: Female

DRUGS (1)
  1. HUMIRA [Suspect]
     Active Substance: ADALIMUMAB
     Indication: PRODUCT USED FOR UNKNOWN INDICATION
     Route: 058

REACTIONS (9)
  - Injury [Unknown]
  - Fear [Unknown]
  - Fistula [Unknown]
  - Fear of injection [Unknown]
  - Crying [Unknown]
  - Injection site reaction [Unknown]
  - Crohn^s disease [Unknown]
  - Pain [Unknown]
  - Abscess [Unknown]
